FAERS Safety Report 25554863 (Version 1)
Quarter: 2025Q3

REPORT INFORMATION
  Report Type: Spontaneous
  Country: EU (occurrence: EU)
  Receive Date: 20250715
  Receipt Date: 20250715
  Transmission Date: 20251020
  Serious: Yes (Other)
  Sender: Unknown Manufacturer
  Company Number: EU-STRIDES ARCOLAB LIMITED-2025OS000065

PATIENT
  Age: 21 Month
  Sex: Male

DRUGS (10)
  1. CYCLOSPORINE [Suspect]
     Active Substance: CYCLOSPORINE
     Indication: Kawasaki^s disease
     Route: 048
  2. CYCLOSPORINE [Suspect]
     Active Substance: CYCLOSPORINE
     Indication: Inflammation
  3. INFLIXIMAB [Concomitant]
     Active Substance: INFLIXIMAB
     Indication: Kawasaki^s disease
     Route: 065
  4. INFLIXIMAB [Concomitant]
     Active Substance: INFLIXIMAB
     Indication: Inflammation
  5. Immunoglobulin [Concomitant]
     Indication: Kawasaki^s disease
     Route: 042
  6. Immunoglobulin [Concomitant]
     Indication: Inflammation
  7. ANAKINRA [Concomitant]
     Active Substance: ANAKINRA
     Indication: Kawasaki^s disease
     Route: 065
  8. ANAKINRA [Concomitant]
     Active Substance: ANAKINRA
     Indication: Inflammation
  9. CANAKINUMAB [Concomitant]
     Active Substance: CANAKINUMAB
     Indication: Kawasaki^s disease
     Route: 065
  10. CANAKINUMAB [Concomitant]
     Active Substance: CANAKINUMAB
     Indication: Inflammation

REACTIONS (2)
  - Disease recurrence [None]
  - Off label use [Unknown]
